FAERS Safety Report 15819911 (Version 1)
Quarter: 2019Q1

REPORT INFORMATION
  Report Type: Spontaneous
  Country: US (occurrence: US)
  Receive Date: 20190114
  Receipt Date: 20190114
  Transmission Date: 20190417
  Serious: Yes (Other)
  Sender: FDA-Public Use
  Company Number: US-IMPAX LABORATORIES, LLC-2018-IPXL-02707

PATIENT
  Age: 78 Year
  Sex: Female
  Weight: 61 kg

DRUGS (5)
  1. LIPITOR [Concomitant]
     Active Substance: ATORVASTATIN CALCIUM
     Indication: PROPHYLAXIS
     Dosage: 20 MG, ONCE A DAY
     Route: 048
     Dates: start: 2008
  2. METOPROLOL. [Concomitant]
     Active Substance: METOPROLOL
     Indication: HYPERTENSION
     Dosage: 100 MG, ONCE A DAY
     Route: 048
     Dates: start: 1998
  3. LOSARTAN/HCT [Concomitant]
     Active Substance: HYDROCHLOROTHIAZIDE\LOSARTAN POTASSIUM
     Indication: HYPERTENSION
     Dosage: 100/12.5 MG, ONE TABLET, ONCE A DAY
     Route: 048
     Dates: start: 1998
  4. BUPROPION XL [Suspect]
     Active Substance: BUPROPION
     Indication: DEPRESSION
     Dosage: 150 MG, ONCE A DAY
     Route: 048
     Dates: start: 20180619, end: 20180719
  5. OMEPRAZOLE. [Concomitant]
     Active Substance: OMEPRAZOLE
     Indication: HIATUS HERNIA
     Dosage: 20 MG, ONCE A DAY
     Route: 048
     Dates: start: 2003

REACTIONS (2)
  - Sudden hearing loss [Recovering/Resolving]
  - Deafness bilateral [Recovering/Resolving]

NARRATIVE: CASE EVENT DATE: 201807
